FAERS Safety Report 15311914 (Version 1)
Quarter: 2018Q3

REPORT INFORMATION
  Report Type: Spontaneous
  Country: US (occurrence: US)
  Receive Date: 20180814
  Receipt Date: 20180814
  Transmission Date: 20181010
  Serious: Yes (Hospitalization)
  Sender: FDA-Public Use
  Company Number: None

PATIENT
  Age: 24 Year
  Sex: Female

DRUGS (10)
  1. ESTARYLLA 0.25?35 TAB [Concomitant]
  2. PULMOZYME [Suspect]
     Active Substance: DORNASE ALFA
     Indication: CYSTIC FIBROSIS
     Route: 055
     Dates: start: 20131105
  3. MEPHYTON 5 MG TAB [Concomitant]
  4. COMPLETE FORMULATION D3000 CAPS [Concomitant]
  5. BUDESONIDE SUS 0.5MG/2ML [Concomitant]
  6. GABAPENTIN 100 MG CAP [Concomitant]
  7. OXCARBAZEPINE 150 MG TAB [Concomitant]
  8. ZENPEP 20,000 UNIT CAP [Concomitant]
  9. METHYLPREDNISOLONE 8 MG TAB [Concomitant]
  10. MONTELUKAST 10 MG TABS [Concomitant]

REACTIONS (2)
  - Lung disorder [None]
  - Condition aggravated [None]

NARRATIVE: CASE EVENT DATE: 20180731
